FAERS Safety Report 6162448-7 (Version None)
Quarter: 2009Q2

REPORT INFORMATION
  Report Type: 
  Country: None (occurrence: None)
  Receive Date: 20090421
  Receipt Date: 20090409
  Transmission Date: 20091009
  Serious: Yes (Hospitalization, Other)
  Sender: FDA-Public Use
  Company Number: PHHY2009DE14346

PATIENT
  Age: 59 Year
  Sex: Male

DRUGS (9)
  1. TEGRETOL [Interacting]
     Indication: PARTIAL SEIZURES
     Dosage: 400-0-500 MG
     Route: 048
     Dates: start: 20050101
  2. TEGRETOL [Interacting]
     Dosage: 200 MG, BID
     Route: 048
     Dates: start: 20090207, end: 20090214
  3. TEGRETOL [Interacting]
     Dosage: 200 MG, QD
     Route: 048
     Dates: start: 20090214, end: 20090221
  4. BISOPROLOL FUMARATE [Suspect]
     Indication: HYPERTENSION
     Dosage: 5 MG, BID
     Route: 048
     Dates: start: 20050101, end: 20090207
  5. KEPPRA [Interacting]
     Indication: PARTIAL SEIZURES
     Dosage: 750 MG, BID
     Route: 048
     Dates: start: 20090201
  6. ENALAPRIL [Concomitant]
     Indication: HYPERTENSION
     Dosage: 5 MG, BID
     Route: 048
     Dates: start: 20050101
  7. HYDROCHLOROTHIAZIDE [Concomitant]
     Indication: HYPERTENSION
     Dosage: 12.5 MG, QD
     Route: 048
     Dates: start: 20050101
  8. NULYTELY [Concomitant]
     Indication: CONSTIPATION
     Dosage: 1 MEQ, BID
     Route: 048
  9. TICLOPIDINE HCL [Concomitant]
     Indication: CEREBELLAR INFARCTION
     Dosage: 250 MG, BID
     Route: 048
     Dates: start: 19980101

REACTIONS (10)
  - ABDOMINAL DISCOMFORT [None]
  - ARRHYTHMIA [None]
  - DEPRESSED LEVEL OF CONSCIOUSNESS [None]
  - EPIGASTRIC DISCOMFORT [None]
  - HEART RATE DECREASED [None]
  - PSYCHOMOTOR RETARDATION [None]
  - RESPIRATORY RATE INCREASED [None]
  - SINUS ARREST [None]
  - SINUS BRADYCARDIA [None]
  - SOMNOLENCE [None]
